FAERS Safety Report 18107481 (Version 2)
Quarter: 2020Q3

REPORT INFORMATION
  Report Type: Spontaneous
  Country: BE (occurrence: BE)
  Receive Date: 20200803
  Receipt Date: 20200820
  Transmission Date: 20201103
  Serious: Yes (Other)
  Sender: FDA-Public Use
  Company Number: BE-NOVOPROD-742660

PATIENT
  Age: 80 Year
  Sex: Male

DRUGS (3)
  1. VICTOZA [Suspect]
     Active Substance: LIRAGLUTIDE
     Indication: PRODUCT USED FOR UNKNOWN INDICATION
     Dosage: 1.2 MG, QD
     Route: 065
     Dates: start: 201911
  2. VICTOZA [Suspect]
     Active Substance: LIRAGLUTIDE
     Dosage: 1.2 MG, QD(DOSE DECREASED)
     Route: 065
  3. VICTOZA [Suspect]
     Active Substance: LIRAGLUTIDE
     Dosage: 1.8 MG, QD
     Route: 065
     Dates: start: 201911

REACTIONS (12)
  - Swelling [Unknown]
  - Somnolence [Unknown]
  - Headache [Unknown]
  - Asthenia [Unknown]
  - Weight increased [Unknown]
  - Depressed mood [Unknown]
  - Flatulence [Unknown]
  - Cardiac fibrillation [Unknown]
  - Peripheral swelling [Unknown]
  - Heart rate irregular [Unknown]
  - Joint swelling [Unknown]
  - Listless [Unknown]
